FAERS Safety Report 4691446-5 (Version None)
Quarter: 2005Q2

REPORT INFORMATION
  Report Type: 
  Country: None (occurrence: None)
  Receive Date: 20050613
  Receipt Date: 20050308
  Transmission Date: 20051028
  Serious: Yes (Hospitalization)
  Sender: FDA-Public Use
  Company Number: S04-USA-07648-01

PATIENT
  Age: 29 Year
  Sex: Female

DRUGS (6)
  1. LEXAPRO [Suspect]
     Indication: ANXIETY
     Dosage: 20 MG BID PO
     Route: 048
     Dates: start: 20040501
  2. LEXAPRO [Suspect]
     Indication: DEPRESSION
     Dosage: 20 MG BID PO
     Route: 048
     Dates: start: 20040501
  3. LEXAPRO [Suspect]
     Indication: OBSESSIVE-COMPULSIVE DISORDER
     Dosage: 20 MG BID PO
     Route: 048
     Dates: start: 20040501
  4. XANAX XR [Suspect]
     Indication: ANXIETY
     Dosage: 16 TABLET ONCE PO
     Route: 048
     Dates: start: 20041127, end: 20041127
  5. XANAX XR [Suspect]
     Indication: ANXIETY
     Dosage: 1 MG PRN PO
     Route: 048
  6. ALCOHOL [Suspect]
     Dates: start: 20041127, end: 20041127

REACTIONS (3)
  - DEPRESSION [None]
  - INTENTIONAL MISUSE [None]
  - SUICIDE ATTEMPT [None]
